FAERS Safety Report 8460451-5 (Version None)
Quarter: 2012Q2

REPORT INFORMATION
  Report Type: 
  Country: None (occurrence: None)
  Receive Date: 20120622
  Receipt Date: 20120619
  Transmission Date: 20120825
  Serious: Yes (Life-Threatening)
  Sender: FDA-Public Use
  Company Number: PHHY2012DK052563

PATIENT
  Sex: Male
  Weight: 65 kg

DRUGS (1)
  1. SCOPOLAMINE [Suspect]
     Indication: DROOLING
     Dosage: STRENGTH 1 MG/72 HRS
     Route: 062
     Dates: start: 20120502, end: 20120503

REACTIONS (2)
  - OFF LABEL USE [None]
  - SWOLLEN TONGUE [None]
